FAERS Safety Report 17065991 (Version 2)
Quarter: 2020Q1

REPORT INFORMATION
  Report Type: Report from Study
  Country: RU (occurrence: RU)
  Receive Date: 20191122
  Receipt Date: 20200218
  Transmission Date: 20200409
  Serious: Yes (Hospitalization)
  Sender: FDA-Public Use
  Company Number: RU-ASTRAZENECA-2019SF65262

PATIENT
  Age: 41 Year
  Sex: Male

DRUGS (4)
  1. BRILINTA [Suspect]
     Active Substance: TICAGRELOR
     Indication: MYOCARDIAL INFARCTION
     Route: 048
     Dates: start: 201906
  2. SULFASALAZINE. [Concomitant]
     Active Substance: SULFASALAZINE
  3. MYDOCALM [Concomitant]
  4. POLYDEXA [Concomitant]
     Active Substance: DEXAMETHASONE SODIUM PHOSPHATE\NEOMYCIN SULFATE\POLYMYXIN B SULFATE

REACTIONS (1)
  - Limb discomfort [Not Recovered/Not Resolved]
